FAERS Safety Report 22023573 (Version 1)
Quarter: 2023Q1

REPORT INFORMATION
  Report Type: Report from Study
  Country: US (occurrence: US)
  Receive Date: 20230223
  Receipt Date: 20230223
  Transmission Date: 20230418
  Serious: Yes (Other)
  Sender: FDA-Public Use
  Company Number: US-ABBVIE-4314893

PATIENT
  Age: 65 Year
  Sex: Female

DRUGS (1)
  1. SKYRIZI [Suspect]
     Active Substance: RISANKIZUMAB-RZAA
     Indication: Psoriatic arthropathy
     Dosage: 2022 ASSESSED AS ONSET OF SHOULDER REPLACEMENT
     Route: 058
     Dates: start: 20220303

REACTIONS (2)
  - Shoulder arthroplasty [Unknown]
  - Rash [Unknown]

NARRATIVE: CASE EVENT DATE: 20230101
